FAERS Safety Report 23501105 (Version 1)
Quarter: 2024Q1

REPORT INFORMATION
  Report Type: Report from Study
  Country: US (occurrence: US)
  Receive Date: 20240208
  Receipt Date: 20240208
  Transmission Date: 20240410
  Serious: Yes (Hospitalization, Other)
  Sender: FDA-Public Use
  Company Number: US-ABBVIE-5625562

PATIENT
  Sex: Female

DRUGS (1)
  1. HUMIRA [Suspect]
     Active Substance: ADALIMUMAB
     Indication: Product used for unknown indication
     Route: 058
     Dates: start: 20140206

REACTIONS (12)
  - Joint effusion [Recovering/Resolving]
  - Bedridden [Recovering/Resolving]
  - Arthralgia [Recovering/Resolving]
  - COVID-19 [Recovering/Resolving]
  - Injection site bruising [Recovering/Resolving]
  - Hip arthroplasty [Recovering/Resolving]
  - Hospitalisation [Recovering/Resolving]
  - Muscle spasms [Recovering/Resolving]
  - Sluggishness [Recovering/Resolving]
  - Anxiety [Recovering/Resolving]
  - Feeling hot [Recovering/Resolving]
  - Pain in extremity [Recovering/Resolving]

NARRATIVE: CASE EVENT DATE: 20200101
